FAERS Safety Report 21838871 (Version 1)
Quarter: 2023Q1

REPORT INFORMATION
  Report Type: Spontaneous
  Country: US (occurrence: None)
  Receive Date: 20230107
  Receipt Date: 20230107
  Transmission Date: 20230417
  Serious: Yes (Hospitalization)
  Sender: FDA-Public Use
  Company Number: None

PATIENT
  Age: 71 Year
  Sex: Male

DRUGS (1)
  1. CEFEPIME HYDROCHLORIDE [Suspect]
     Active Substance: CEFEPIME HYDROCHLORIDE
     Indication: Infection
     Dates: start: 20221116, end: 20221206

REACTIONS (6)
  - Confusional state [None]
  - Neurotoxicity [None]
  - Acute kidney injury [None]
  - Renal tubular necrosis [None]
  - Hypovolaemia [None]
  - Dialysis [None]

NARRATIVE: CASE EVENT DATE: 20221206
